FAERS Safety Report 9178014 (Version 1)
Quarter: 2012Q4

REPORT INFORMATION
  Report Type: 
  Country: US (occurrence: US)
  Receive Date: 20121018
  Receipt Date: 20121018
  Transmission Date: 20130627
  Serious: Yes (Other)
  Sender: FDA-Public Use
  Company Number: US-RB-045654-12

PATIENT
  Age: 27 Year
  Sex: Male

DRUGS (2)
  1. SUBOXONE TABLET [Suspect]
     Indication: PRODUCT USED FOR UNKNOWN INDICATION
     Dosage: Dosing details unknown
     Route: 065
  2. SUBOXONE FILM [Suspect]
     Indication: PRODUCT USED FOR UNKNOWN INDICATION
     Dosage: Suboxone film; dosing details unknown
     Route: 065

REACTIONS (4)
  - Drug hypersensitivity [Unknown]
  - Pulmonary oedema [Unknown]
  - Dyspnoea [Unknown]
  - Substance abuse [Unknown]
